FAERS Safety Report 22148191 (Version 1)
Quarter: 2023Q1

REPORT INFORMATION
  Report Type: Spontaneous
  Country: AU (occurrence: AU)
  Receive Date: 20230328
  Receipt Date: 20230328
  Transmission Date: 20230418
  Serious: Yes (Other)
  Sender: FDA-Public Use
  Company Number: AU-BRISTOL-MYERS SQUIBB COMPANY-2023-043826

PATIENT
  Age: 43 Year
  Sex: Female

DRUGS (2)
  1. IPILIMUMAB [Suspect]
     Active Substance: IPILIMUMAB
     Indication: Metastatic malignant melanoma
  2. PEMBROLIZUMAB [Suspect]
     Active Substance: PEMBROLIZUMAB
     Indication: Metastatic malignant melanoma

REACTIONS (5)
  - Immune-mediated dermatitis [Unknown]
  - Off label use [Unknown]
  - Oligoarthritis [Recovering/Resolving]
  - Tenosynovitis [Recovering/Resolving]
  - Immune-mediated pancreatitis [Unknown]
